FAERS Safety Report 5478992-1 (Version None)
Quarter: 2007Q4

REPORT INFORMATION
  Report Type: 
  Country: None (occurrence: None)
  Receive Date: 20071006
  Receipt Date: 20070925
  Transmission Date: 20080405
  Serious: Yes (Other)
  Sender: FDA-Public Use
  Company Number: US-PFIZER INC-2007078901

PATIENT
  Sex: Female
  Weight: 55.5 kg

DRUGS (4)
  1. CHANTIX [Suspect]
     Indication: SMOKING CESSATION THERAPY
  2. DIAZEPAM [Concomitant]
  3. VICODIN [Concomitant]
  4. MOBIC [Concomitant]

REACTIONS (3)
  - ABNORMAL SENSATION IN EYE [None]
  - ANXIETY [None]
  - VITREOUS FLOATERS [None]
